FAERS Safety Report 22830852 (Version 10)
Quarter: 2023Q4

REPORT INFORMATION
  Report Type: Report from Study
  Country: SE (occurrence: SE)
  Receive Date: 20230817
  Receipt Date: 20231201
  Transmission Date: 20240110
  Serious: Yes (Death, Hospitalization, Other)
  Sender: FDA-Public Use
  Company Number: SE-ABBVIE-5364535

PATIENT
  Sex: Female

DRUGS (4)
  1. CARBIDOPA\LEVODOPA [Suspect]
     Active Substance: CARBIDOPA\LEVODOPA
     Indication: Parkinson^s disease
     Dosage: MORNING DOSE IS DECREASED WITH 3ML. CONTINUOUS DOSE IS DECREASED WITH  0.2 ML/H.?DRUG START DATE:...
     Route: 050
     Dates: start: 20231116
  2. CARBIDOPA\LEVODOPA [Suspect]
     Active Substance: CARBIDOPA\LEVODOPA
     Dosage: THERAPY DURATION: REMAINS AT 16H
     Route: 050
     Dates: start: 20230207
  3. VITAMIN D [Concomitant]
     Active Substance: VITAMIN D NOS
     Indication: Product used for unknown indication
  4. FOLIC ACID [Concomitant]
     Active Substance: FOLIC ACID
     Indication: Product used for unknown indication

REACTIONS (21)
  - Pulmonary oedema [Fatal]
  - Abdominal pain [Unknown]
  - Nausea [Unknown]
  - Ileus [Recovered/Resolved]
  - Unevaluable event [Unknown]
  - Device occlusion [Unknown]
  - Organ failure [Unknown]
  - Device dislocation [Recovered/Resolved]
  - Infection [Unknown]
  - Psychotic disorder [Not Recovered/Not Resolved]
  - Off label use [Not Recovered/Not Resolved]
  - Hallucination [Not Recovered/Not Resolved]
  - Hypophagia [Not Recovered/Not Resolved]
  - Confusional state [Unknown]
  - Weight decreased [Unknown]
  - Hallucination, visual [Unknown]
  - Parkinson^s disease [Unknown]
  - Apathy [Unknown]
  - Anxiety [Unknown]
  - Orthostatic hypotension [Unknown]
  - Device kink [Recovered/Resolved]

NARRATIVE: CASE EVENT DATE: 20230101
